FAERS Safety Report 10543912 (Version 1)
Quarter: 2014Q4

REPORT INFORMATION
  Report Type: Spontaneous
  Country: US (occurrence: None)
  Receive Date: 20141010
  Receipt Date: 20141010
  Transmission Date: 20150529
  Serious: Yes (Other)
  Sender: FDA-Public Use
  Company Number: 163-POMAL-14071637

PATIENT
  Age: 54 Year
  Sex: Male

DRUGS (4)
  1. POMALYST [Suspect]
     Active Substance: POMALIDOMIDE
     Indication: PLASMA CELL MYELOMA
     Dosage: 4 MG, 21 IN 21 D, PO
     Route: 048
     Dates: start: 20131022
  2. DEXMAETHASONE [Concomitant]
  3. AUGMENTIN(CLAVULIN) [Concomitant]
  4. ACYCLOVIR(ACICLOVIR) [Concomitant]

REACTIONS (1)
  - Plasma cell myeloma [None]
